FAERS Safety Report 7229990-9 (Version None)
Quarter: 2011Q1

REPORT INFORMATION
  Report Type: 
  Country: None (occurrence: None)
  Receive Date: 20110117
  Receipt Date: 20110107
  Transmission Date: 20110831
  Serious: Yes (Death, Other)
  Sender: FDA-Public Use
  Company Number: US-NAPPMUNDI-USA-2011-0061970

PATIENT
  Age: 16 Month
  Sex: Female

DRUGS (1)
  1. OXYCODONE HCL [Suspect]
     Indication: ACCIDENTAL EXPOSURE
     Dosage: UNK

REACTIONS (4)
  - MULTIPLE DRUG OVERDOSE INTENTIONAL [None]
  - LOSS OF CONSCIOUSNESS [None]
  - VICTIM OF HOMICIDE [None]
  - ACCIDENTAL EXPOSURE [None]
